FAERS Safety Report 21233091 (Version 1)
Quarter: 2022Q3

REPORT INFORMATION
  Report Type: Spontaneous
  Country: FR (occurrence: FR)
  Receive Date: 20220819
  Receipt Date: 20220819
  Transmission Date: 20221027
  Serious: Yes (Hospitalization, Other)
  Sender: FDA-Public Use
  Company Number: None

PATIENT
  Age: 64 Year
  Sex: Female
  Weight: 45 kg

DRUGS (37)
  1. PREDNISONE [Suspect]
     Active Substance: PREDNISONE
     Indication: Neuroendocrine tumour of the lung
     Dosage: 40 MILLIGRAM, QD
     Route: 048
     Dates: start: 20220527, end: 20220606
  2. PREDNISONE [Suspect]
     Active Substance: PREDNISONE
     Dosage: 80 MILLIGRAM, QD
     Route: 048
     Dates: start: 20220622
  3. PREDNISONE [Suspect]
     Active Substance: PREDNISONE
     Dosage: 40 MILLIGRAM, QD
     Route: 048
     Dates: start: 202111, end: 202112
  4. PREDNISONE [Suspect]
     Active Substance: PREDNISONE
     Dosage: 20 MILLIGRAM, QD
     Route: 048
     Dates: start: 20220608, end: 20220622
  5. PREDNISONE [Suspect]
     Active Substance: PREDNISONE
     Dosage: 20 MILLIGRAM, QD
     Route: 048
     Dates: start: 20220113, end: 20220423
  6. PREDNISONE [Suspect]
     Active Substance: PREDNISONE
     Dosage: 40 MILLIGRAM, QD
     Route: 048
     Dates: start: 20220506, end: 20220509
  7. SKENAN [Suspect]
     Active Substance: MORPHINE SULFATE
     Indication: Pain
     Dosage: 10 MILLIGRAM, BID
     Route: 048
     Dates: start: 20220119
  8. PACLITAXEL [Suspect]
     Active Substance: PACLITAXEL
     Indication: Neuroendocrine carcinoma
     Dosage: 146 MILLIGRAM (1 TOTAL)
     Route: 042
     Dates: start: 20210818, end: 20210818
  9. PACLITAXEL [Suspect]
     Active Substance: PACLITAXEL
     Dosage: 136 MILLIGRAM (1 TOTAL)
     Route: 042
     Dates: start: 20220411, end: 20220411
  10. PACLITAXEL [Suspect]
     Active Substance: PACLITAXEL
     Dosage: 136 MILLIGRAM (1 TOTAL)
     Route: 042
     Dates: start: 20220404, end: 20220404
  11. PACLITAXEL [Suspect]
     Active Substance: PACLITAXEL
     Dosage: 116 MILLIGRAM (1 TOTAL)
     Route: 042
     Dates: start: 20220608, end: 20220608
  12. PACLITAXEL [Suspect]
     Active Substance: PACLITAXEL
     Dosage: 132 MILLIGRAM (1 TOTAL)
     Route: 042
     Dates: start: 20220506, end: 20220506
  13. PACLITAXEL [Suspect]
     Active Substance: PACLITAXEL
     Dosage: 280 MILLIGRAM (1 TOTAL)
     Route: 042
     Dates: start: 20210713, end: 20210713
  14. PACLITAXEL [Suspect]
     Active Substance: PACLITAXEL
     Dosage: 146 MILLIGRAM (1 TOTAL)
     Route: 042
     Dates: start: 20210803, end: 20210803
  15. PACLITAXEL [Suspect]
     Active Substance: PACLITAXEL
     Dosage: 116 MILLIGRAM (1 TOTAL)
     Route: 042
     Dates: start: 20220622, end: 20220622
  16. PACLITAXEL [Suspect]
     Active Substance: PACLITAXEL
     Dosage: 132 MILLIGRAM (1 TOTAL)
     Route: 042
     Dates: start: 20220513, end: 20220513
  17. PACLITAXEL [Suspect]
     Active Substance: PACLITAXEL
     Dosage: 124 MILLIGRAM (1 TOTAL)
     Route: 042
     Dates: start: 20210909, end: 20210909
  18. PACLITAXEL [Suspect]
     Active Substance: PACLITAXEL
     Dosage: 116 MILLIGRAM (1 TOTAL)
     Route: 042
     Dates: start: 20220615, end: 20220615
  19. PACLITAXEL [Suspect]
     Active Substance: PACLITAXEL
     Dosage: 123 MILLIGRAM (1 TOTAL)
     Route: 042
     Dates: start: 20210916, end: 20210916
  20. PACLITAXEL [Suspect]
     Active Substance: PACLITAXEL
     Dosage: 123 MILLIGRAM (1 TOTAL)
     Route: 042
     Dates: start: 20210923, end: 20210923
  21. PACLITAXEL [Suspect]
     Active Substance: PACLITAXEL
     Dosage: 132 MILLIGRAM (1 TOTAL)
     Route: 042
     Dates: start: 20220422, end: 20220422
  22. PACLITAXEL [Suspect]
     Active Substance: PACLITAXEL
     Dosage: 285 MILLIGRAM (1 TOTAL)
     Route: 042
     Dates: start: 20210623, end: 20210623
  23. MORPHINE SULFATE [Suspect]
     Active Substance: MORPHINE SULFATE
     Indication: Pain
     Dosage: EVERY 4 HOURS IF NEEDED
     Route: 048
     Dates: start: 20220119
  24. CARBOPLATIN [Suspect]
     Active Substance: CARBOPLATIN
     Indication: Neuroendocrine carcinoma
     Dosage: 405 MILLIGRAM (1 TOTAL)
     Route: 042
     Dates: start: 20210909, end: 20210909
  25. CARBOPLATIN [Suspect]
     Active Substance: CARBOPLATIN
     Dosage: 390 MILLIGRAM (1 TOTAL)
     Route: 042
     Dates: start: 20220608, end: 20220608
  26. CARBOPLATIN [Suspect]
     Active Substance: CARBOPLATIN
     Dosage: 410 MILLIGRAM (1 TOTAL)
     Route: 042
     Dates: start: 20210318, end: 20210318
  27. CARBOPLATIN [Suspect]
     Active Substance: CARBOPLATIN
     Dosage: 440 MILLIGRAM (1 TOTAL)
     Route: 042
     Dates: start: 20220215, end: 20220215
  28. CARBOPLATIN [Suspect]
     Active Substance: CARBOPLATIN
     Dosage: 455 MILLIGRAM (1 TOTAL)
     Route: 042
     Dates: start: 20210803, end: 20210803
  29. CARBOPLATIN [Suspect]
     Active Substance: CARBOPLATIN
     Dosage: 500 MILLIGRAM (1 TOTAL)
     Route: 042
     Dates: start: 20220506, end: 20220506
  30. CARBOPLATIN [Suspect]
     Active Substance: CARBOPLATIN
     Dosage: 465 MILLIGRAM (1 TOTAL)
     Route: 042
     Dates: start: 20220117, end: 20220117
  31. CARBOPLATIN [Suspect]
     Active Substance: CARBOPLATIN
     Dosage: 550 MILLIGRAM (1 TOTAL)
     Route: 042
     Dates: start: 20210531, end: 20210531
  32. CARBOPLATIN [Suspect]
     Active Substance: CARBOPLATIN
     Dosage: 485 MILLIGRAM (1 TOTAL)
     Route: 042
     Dates: start: 20220404, end: 20220404
  33. CARBOPLATIN [Suspect]
     Active Substance: CARBOPLATIN
     Dosage: 530 MILLIGRAM (1 TOTAL)
     Route: 042
     Dates: start: 20210623, end: 20210623
  34. CARBOPLATIN [Suspect]
     Active Substance: CARBOPLATIN
     Dosage: 520 MILLIGRAM (1 TOTAL)
     Route: 042
     Dates: start: 20210713, end: 20210713
  35. CARBOPLATIN [Suspect]
     Active Substance: CARBOPLATIN
     Dosage: 510 MILLIGRAM (1 TOTAL)
     Route: 042
     Dates: start: 20210505, end: 20210505
  36. CARBOPLATIN [Suspect]
     Active Substance: CARBOPLATIN
     Dosage: 510 MILLIGRAM (1 TOTAL)
     Route: 042
     Dates: start: 20210412, end: 20210412
  37. CARBOPLATIN [Suspect]
     Active Substance: CARBOPLATIN
     Dosage: 455 MILLIGRAM (1 TOTAL)
     Route: 042
     Dates: start: 20210803, end: 20210803

REACTIONS (1)
  - Pancreatitis acute [Not Recovered/Not Resolved]

NARRATIVE: CASE EVENT DATE: 20220712
